FAERS Safety Report 7070032-6 (Version None)
Quarter: 2010Q4

REPORT INFORMATION
  Report Type: 
  Country: None (occurrence: None)
  Receive Date: 20101028
  Receipt Date: 20100812
  Transmission Date: 20110411
  Serious: No
  Sender: FDA-Public Use
  Company Number: US-WYE-H16914910

PATIENT
  Sex: Male

DRUGS (2)
  1. ADVIL [Suspect]
     Indication: MYALGIA
     Dosage: UNKNOWN
     Route: 065
  2. ADVIL [Suspect]

REACTIONS (1)
  - ABDOMINAL PAIN UPPER [None]
